FAERS Safety Report 16025635 (Version 1)
Quarter: 2019Q1

REPORT INFORMATION
  Report Type: Spontaneous
  Country: DE (occurrence: DE)
  Receive Date: 20190302
  Receipt Date: 20190302
  Transmission Date: 20190418
  Serious: Yes (Other)
  Sender: FDA-Public Use
  Company Number: DE-SUN PHARMACEUTICAL INDUSTRIES LTD-2019RR-200048

PATIENT
  Age: 25 Year
  Sex: Male

DRUGS (3)
  1. RITUXIMAB. [Suspect]
     Active Substance: RITUXIMAB
     Indication: ROSAI-DORFMAN SYNDROME
     Dosage: 375 MILLIGRAM/SQ. METER, ONCE IN 3 WEEKS
     Route: 065
  2. CLOFARABINE. [Suspect]
     Active Substance: CLOFARABINE
     Indication: ROSAI-DORFMAN SYNDROME
     Dosage: 25MG/M2 X5DAYS/CYCLE Q28D
     Route: 065
  3. IMATINIB. [Suspect]
     Active Substance: IMATINIB MESYLATE
     Indication: ROSAI-DORFMAN SYNDROME
     Dosage: 400 MILLIGRAM, QD, 4 DOSES
     Route: 065

REACTIONS (5)
  - Drug ineffective [Unknown]
  - Pancytopenia [Unknown]
  - Bone marrow infiltration [Unknown]
  - Disease progression [Unknown]
  - Renal disorder [Unknown]
